FAERS Safety Report 9625214 (Version 4)
Quarter: 2013Q4

REPORT INFORMATION
  Report Type: Spontaneous
  Country: US (occurrence: US)
  Receive Date: 20131016
  Receipt Date: 20131126
  Transmission Date: 20140711
  Serious: Yes (Death)
  Sender: FDA-Public Use
  Company Number: US-PFIZER INC-2013291064

PATIENT
  Age: 71 Year
  Sex: Female

DRUGS (1)
  1. SUTENT [Suspect]
     Indication: THYROID CANCER
     Dosage: 37.5 MG, DAILY (VIA G-TUBE MIXED IN WATER)
     Dates: start: 20131001, end: 20131106

REACTIONS (6)
  - Disease progression [Fatal]
  - Thyroid cancer [Fatal]
  - Skin fissures [Unknown]
  - Palmar-plantar erythrodysaesthesia syndrome [Unknown]
  - Off label use [Unknown]
  - Wrong technique in drug usage process [Unknown]
